FAERS Safety Report 12292974 (Version 1)
Quarter: 2016Q2

REPORT INFORMATION
  Report Type: Report from Study
  Country: US (occurrence: US)
  Receive Date: 20160421
  Receipt Date: 20160421
  Transmission Date: 20160815
  Serious: No
  Sender: FDA-Public Use
  Company Number: US-AMGEN-USASL2016028840

PATIENT
  Age: 68 Year
  Sex: Female

DRUGS (1)
  1. REPATHA [Suspect]
     Active Substance: EVOLOCUMAB
     Indication: HYPERLIPIDAEMIA
     Dosage: 140 MG, Q2WK
     Route: 065

REACTIONS (10)
  - Influenza like illness [Unknown]
  - Myalgia [Unknown]
  - Nausea [Unknown]
  - Asthenia [Unknown]
  - Arthralgia [Unknown]
  - Cough [Unknown]
  - Dizziness [Unknown]
  - Back pain [Unknown]
  - Muscle spasms [Unknown]
  - Nasopharyngitis [Unknown]
